FAERS Safety Report 9876336 (Version 1)
Quarter: 2014Q1

REPORT INFORMATION
  Report Type: Other
  Country: US (occurrence: US)
  Receive Date: 20140206
  Receipt Date: 20140206
  Transmission Date: 20141002
  Serious: No
  Sender: FDA-Public Use
  Company Number: US-ACORDA-ACO_38208_2013

PATIENT
  Age: 58 Year
  Sex: Female
  Weight: 56.69 kg

DRUGS (2)
  1. AMPYRA [Suspect]
     Indication: PRIMARY PROGRESSIVE MULTIPLE SCLEROSIS
     Dosage: 10 MG, BID
     Route: 048
     Dates: start: 2010, end: 20130823
  2. AMPYRA [Suspect]
     Dosage: 10 MG, QD
     Route: 048
     Dates: start: 20130824

REACTIONS (2)
  - Fatigue [Not Recovered/Not Resolved]
  - Inappropriate schedule of drug administration [Unknown]
